FAERS Safety Report 15901078 (Version 2)
Quarter: 2019Q1

REPORT INFORMATION
  Report Type: Spontaneous
  Country: US (occurrence: US)
  Receive Date: 20190201
  Receipt Date: 20190208
  Transmission Date: 20190417
  Serious: Yes (Hospitalization)
  Sender: FDA-Public Use
  Company Number: US-VIFOR (INTERNATIONAL) INC.-VIT-2019-00866

PATIENT
  Age: 64 Year
  Sex: Male
  Weight: 70.82 kg

DRUGS (8)
  1. VITAMIN D3 [Concomitant]
     Active Substance: CHOLECALCIFEROL
  2. BYSTOLIC [Concomitant]
     Active Substance: NEBIVOLOL HYDROCHLORIDE
  3. VELTASSA [Suspect]
     Active Substance: PATIROMER
     Indication: HYPERKALAEMIA
     Route: 048
     Dates: start: 20171222
  4. SODIUM BICARBONATE. [Concomitant]
     Active Substance: SODIUM BICARBONATE
  5. HYDRALAZINE HCL [Concomitant]
     Active Substance: HYDRALAZINE HYDROCHLORIDE
  6. ATORVASTATIN CALCIUM. [Concomitant]
     Active Substance: ATORVASTATIN CALCIUM
  7. IRON [Concomitant]
     Active Substance: IRON
  8. BUMETANIDE. [Concomitant]
     Active Substance: BUMETANIDE

REACTIONS (7)
  - Musculoskeletal disorder [Unknown]
  - Coronary artery occlusion [Unknown]
  - Pulmonary oedema [Unknown]
  - Fluid retention [Unknown]
  - Renal impairment [Unknown]
  - Pericardial effusion [Unknown]
  - Weight abnormal [Unknown]

NARRATIVE: CASE EVENT DATE: 20181226
